FAERS Safety Report 5951308-X (Version None)
Quarter: 2008Q4

REPORT INFORMATION
  Report Type: 
  Country: None (occurrence: None)
  Receive Date: 20081113
  Receipt Date: 20081103
  Transmission Date: 20090506
  Serious: Yes (Other)
  Sender: FDA-Public Use
  Company Number: BR-ROCHE-595282

PATIENT
  Age: 65 Year
  Sex: Male
  Weight: 80 kg

DRUGS (3)
  1. RIVOTRIL [Suspect]
     Indication: DEPRESSION
     Route: 048
     Dates: start: 20020101
  2. AMPLICTIL [Concomitant]
     Indication: DEPRESSION
     Route: 048
     Dates: start: 20080401
  3. RISPERIDONE [Concomitant]
     Indication: DEPRESSION
     Dosage: OTHER INDICATION: ANXIETY
     Route: 048
     Dates: start: 20080401

REACTIONS (2)
  - FEMUR FRACTURE [None]
  - NO THERAPEUTIC RESPONSE [None]
